FAERS Safety Report 8862572 (Version 1)
Quarter: 2012Q4

REPORT INFORMATION
  Report Type: 
  Country: IT (occurrence: IT)
  Receive Date: 20121026
  Receipt Date: 20121026
  Transmission Date: 20130627
  Serious: Yes (Hospitalization)
  Sender: FDA-Public Use
  Company Number: IT-JNJFOC-20121010936

PATIENT
  Age: 7 Year

DRUGS (4)
  1. DOXORUBICIN [Suspect]
     Indication: BONE SARCOMA
     Dosage: over 24 hours
     Route: 042
  2. CISPLATIN [Suspect]
     Indication: BONE SARCOMA
     Route: 065
  3. METHOTREXATE [Suspect]
     Indication: BONE SARCOMA
     Route: 065
  4. IFOSFAMIDE [Suspect]
     Indication: BONE SARCOMA
     Route: 065

REACTIONS (2)
  - Myeloid leukaemia [Unknown]
  - Off label use [Unknown]
